FAERS Safety Report 19362219 (Version 2)
Quarter: 2021Q2

REPORT INFORMATION
  Report Type: Spontaneous
  Country: SK (occurrence: SK)
  Receive Date: 20210603
  Receipt Date: 20210617
  Transmission Date: 20210717
  Serious: Yes (Other)
  Sender: FDA-Public Use
  Company Number: SK-CELLTRION INC.-2021SK007368

PATIENT

DRUGS (2)
  1. RITUXIMAB (UNKNOWN) [Suspect]
     Active Substance: RITUXIMAB
     Indication: DIFFUSE LARGE B-CELL LYMPHOMA
     Dosage: COMPLETED 6 CYCLES OF R?CHOP CHEMOTHERAPY
  2. CHOP [Suspect]
     Active Substance: CYCLOPHOSPHAMIDE\DOXORUBICIN\PREDNISONE\VINCRISTINE
     Indication: DIFFUSE LARGE B-CELL LYMPHOMA
     Dosage: COMPLETED 6 CYCLES OF R?CHOP CHEMOTHERAPY

REACTIONS (5)
  - Paraparesis [Unknown]
  - Disease progression [Recovered/Resolved]
  - Diffuse large B-cell lymphoma recurrent [Unknown]
  - Polyneuropathy [Unknown]
  - Pneumonia [Unknown]
